FAERS Safety Report 23601879 (Version 1)
Quarter: 2024Q1

REPORT INFORMATION
  Report Type: Spontaneous
  Country: US (occurrence: US)
  Receive Date: 20240306
  Receipt Date: 20240306
  Transmission Date: 20240410
  Serious: No
  Sender: FDA-Public Use
  Company Number: US-TEVA-2023-US-2921881

PATIENT
  Age: 35 Year
  Sex: Male

DRUGS (1)
  1. ADDERALL [Suspect]
     Active Substance: AMPHETAMINE ASPARTATE\AMPHETAMINE SULFATE\DEXTROAMPHETAMINE SACCHARATE\DEXTROAMPHETAMINE SULFATE
     Indication: Attention deficit hyperactivity disorder
     Dosage: DOSAGE TEXT: 30 MILLIGRAM
     Route: 065

REACTIONS (2)
  - Amphetamines positive [Unknown]
  - Product colour issue [Unknown]

NARRATIVE: CASE EVENT DATE: 20230701
